FAERS Safety Report 9830120 (Version 1)
Quarter: 2014Q1

REPORT INFORMATION
  Report Type: Spontaneous
  Country: US (occurrence: US)
  Receive Date: 20140120
  Receipt Date: 20140120
  Transmission Date: 20141002
  Serious: Yes (Other)
  Sender: FDA-Public Use
  Company Number: US-BAYER-2014-005342

PATIENT
  Age: 58 Year
  Sex: Female

DRUGS (1)
  1. GADAVIST [Suspect]
     Indication: NUCLEAR MAGNETIC RESONANCE IMAGING
     Dosage: 6 ML, ONCE
     Route: 042
     Dates: start: 20140109, end: 20140109

REACTIONS (4)
  - Vomiting [None]
  - Rash [None]
  - Swelling [None]
  - Pruritus [None]
